FAERS Safety Report 8034433-1 (Version None)
Quarter: 2012Q1

REPORT INFORMATION
  Report Type: 
  Country: None (occurrence: None)
  Receive Date: 20120110
  Receipt Date: 20120103
  Transmission Date: 20120608
  Serious: Yes (Hospitalization)
  Sender: FDA-Public Use
  Company Number: US-CELGENEUS-163-21880-12010519

PATIENT
  Age: 57 Year
  Sex: Male
  Weight: 88.076 kg

DRUGS (3)
  1. DECADRON [Suspect]
     Indication: MULTIPLE MYELOMA
     Dosage: 20 MILLIGRAM
     Route: 041
     Dates: start: 20110513, end: 20110929
  2. VELCADE [Suspect]
     Indication: MULTIPLE MYELOMA
     Dosage: 2.7 MILLIGRAM
     Route: 041
     Dates: start: 20110513, end: 20111028
  3. REVLIMID [Suspect]
     Indication: MULTIPLE MYELOMA
     Dosage: 25 MILLIGRAM
     Route: 048
     Dates: start: 20110606, end: 20110720

REACTIONS (2)
  - HAEMORRHOIDS [None]
  - PYREXIA [None]
